FAERS Safety Report 6197319-3 (Version None)
Quarter: 2009Q2

REPORT INFORMATION
  Report Type: 
  Country: None (occurrence: None)
  Receive Date: 20090518
  Receipt Date: 20090505
  Transmission Date: 20091009
  Serious: Yes (Life-Threatening)
  Sender: FDA-Public Use
  Company Number: 2009AP001832

PATIENT
  Age: 84 Year
  Sex: Female

DRUGS (4)
  1. AMLODIPINE BESYLATE [Suspect]
     Indication: HYPERTENSION
     Dosage: 5 MG; QD PO
     Route: 048
     Dates: start: 20090201, end: 20090404
  2. LISINOPRIL [Concomitant]
  3. HYDROCHLOROTHIAZIDE [Concomitant]
  4. WARFARIN SODIUM [Concomitant]

REACTIONS (3)
  - ACUTE LEFT VENTRICULAR FAILURE [None]
  - DYSPNOEA EXERTIONAL [None]
  - OEDEMA PERIPHERAL [None]
